FAERS Safety Report 7495905-1 (Version None)
Quarter: 2011Q2

REPORT INFORMATION
  Report Type: 
  Country: None (occurrence: None)
  Receive Date: 20110523
  Receipt Date: 20110514
  Transmission Date: 20111010
  Serious: Yes (Other)
  Sender: FDA-Public Use
  Company Number: PT-B.I. PHARMACEUTICALS,INC./RIDGEFIELD-2011-DE-03102BY

PATIENT

DRUGS (4)
  1. INDAPAMIDE [Suspect]
     Dosage: 1.5 MG
     Route: 048
  2. TELMISARTAN [Suspect]
     Dosage: 40 MG
     Route: 048
  3. GLICLAZIDE [Concomitant]
  4. METFORMIN HYDROCHLORIDE [Concomitant]

REACTIONS (1)
  - OESOPHAGEAL HAEMORRHAGE [None]
